FAERS Safety Report 18499517 (Version 1)
Quarter: 2020Q4

REPORT INFORMATION
  Report Type: Other
  Country: CA (occurrence: CA)
  Receive Date: 20201112
  Receipt Date: 20201112
  Transmission Date: 20210114
  Serious: Yes (Other)
  Sender: FDA-Public Use
  Company Number: CA-CELLTRION INC.-2020CA030749

PATIENT

DRUGS (23)
  1. RITUXIMAB (UNKNOWN) [Suspect]
     Active Substance: RITUXIMAB
     Indication: RHEUMATOID ARTHRITIS
     Dosage: 1000.0 MILLIGRAM, 1 EVERY 15 DAYS
     Route: 042
  2. ACETAMINOPHEN. [Concomitant]
     Active Substance: ACETAMINOPHEN
     Dosage: 650.0 MILLIGRAM
     Route: 048
  3. DIPHENHYDRAMINE HYDROCHLORIDE. [Concomitant]
     Active Substance: DIPHENHYDRAMINE HYDROCHLORIDE
     Dosage: 50.0 MILLIGRAM
     Route: 048
  4. ACTEMRA [Suspect]
     Active Substance: TOCILIZUMAB
     Indication: RHEUMATOID ARTHRITIS
     Dosage: 162.0 MILLIGRAM, 1 EVERY 1 WEEK
     Route: 058
  5. DIOVAN HCT [Concomitant]
     Active Substance: HYDROCHLOROTHIAZIDE\VALSARTAN
  6. LOSEC [Concomitant]
     Active Substance: OMEPRAZOLE
  7. NORVASC [Concomitant]
     Active Substance: AMLODIPINE BESYLATE
  8. EFFEXOR [Concomitant]
     Active Substance: VENLAFAXINE HYDROCHLORIDE
     Dosage: 75.0 MILLIGRAM
     Route: 065
  9. PERCOCET [Concomitant]
     Active Substance: ACETAMINOPHEN\OXYCODONE HYDROCHLORIDE
     Route: 065
  10. SERC [Concomitant]
  11. SYNTHROID [Concomitant]
     Active Substance: LEVOTHYROXINE SODIUM
  12. TRAZODONE [Concomitant]
     Active Substance: TRAZODONE HYDROCHLORIDE
  13. GABAPENTIN. [Concomitant]
     Active Substance: GABAPENTIN
  14. LEFLUNOMIDE. [Concomitant]
     Active Substance: LEFLUNOMIDE
  15. ZOPICLONE [Concomitant]
     Active Substance: ZOPICLONE
  16. ALENDRONATE [Concomitant]
     Active Substance: ALENDRONATE SODIUM
  17. BUPROPION. [Concomitant]
     Active Substance: BUPROPION
  18. DOMPERIDONE [Concomitant]
     Active Substance: DOMPERIDONE
  19. EFFEXOR [Concomitant]
     Active Substance: VENLAFAXINE HYDROCHLORIDE
     Dosage: 150.0 MILLIGRAM
     Route: 065
  20. METHOTREXATE. [Concomitant]
     Active Substance: METHOTREXATE
  21. OXYCODONE [Concomitant]
     Active Substance: OXYCODONE
     Dosage: 10.0 MILLIGRAM, 3 EVERY 1 DAY
     Route: 065
  22. FOLIC ACID. [Concomitant]
     Active Substance: FOLIC ACID
  23. METHYLPREDNISOLONE. [Concomitant]
     Active Substance: METHYLPREDNISOLONE
     Dosage: 100.0 MILLIGRAM
     Route: 042

REACTIONS (3)
  - Weight decreased [Unknown]
  - Compression fracture [Unknown]
  - Off label use [Unknown]
